FAERS Safety Report 17766184 (Version 1)
Quarter: 2020Q2

REPORT INFORMATION
  Report Type: Spontaneous
  Country: SE (occurrence: SE)
  Receive Date: 20200511
  Receipt Date: 20200511
  Transmission Date: 20200714
  Serious: Yes (Hospitalization, Other)
  Sender: FDA-Public Use
  Company Number: SE-JNJFOC-20191114471

PATIENT
  Age: 63 Year
  Sex: Male

DRUGS (3)
  1. LERGIGAN                           /00033002/ [Suspect]
     Active Substance: PROMETHAZINE HYDROCHLORIDE
     Indication: PRODUCT USED FOR UNKNOWN INDICATION
     Dosage: 50 MG, EN BURK 100 ST
     Route: 048
     Dates: start: 20180101, end: 20180101
  2. TRAMADOL HYDROCHLORIDE. [Suspect]
     Active Substance: TRAMADOL HYDROCHLORIDE
     Indication: PRODUCT USED FOR UNKNOWN INDICATION
     Dosage: 19 STYCKEN
     Route: 065
     Dates: start: 20180101, end: 20180101
  3. GABAPENTIN. [Suspect]
     Active Substance: GABAPENTIN
     Indication: PRODUCT USED FOR UNKNOWN INDICATION
     Dosage: 9 STYCKEN
     Route: 065
     Dates: start: 20180101, end: 20180101

REACTIONS (2)
  - Intentional self-injury [Unknown]
  - Intentional overdose [Unknown]

NARRATIVE: CASE EVENT DATE: 20180101
